FAERS Safety Report 17423695 (Version 4)
Quarter: 2020Q1

REPORT INFORMATION
  Report Type: Spontaneous
  Country: JP (occurrence: JP)
  Receive Date: 20200217
  Receipt Date: 20200306
  Transmission Date: 20200409
  Serious: Yes (Death, Other)
  Sender: FDA-Public Use
  Company Number: JP-AMGEN-JPNSP2020026846

PATIENT
  Age: 94 Year
  Sex: Female

DRUGS (17)
  1. NESP [Suspect]
     Active Substance: DARBEPOETIN ALFA
     Indication: NEPHROGENIC ANAEMIA
     Dosage: 30 MICROGRAM
     Route: 058
     Dates: start: 20181122, end: 20191227
  2. TAKECAB [Concomitant]
     Active Substance: VONOPRAZAN FUMURATE
     Dosage: 10 MG
     Route: 048
  3. FERROMIA [Concomitant]
     Active Substance: SODIUM FERROUS CITRATE
     Dosage: 100 MG
     Route: 048
  4. DIART [Concomitant]
     Active Substance: AZOSEMIDE
     Dosage: 60 MG
     Route: 048
  5. DIART [Concomitant]
     Active Substance: AZOSEMIDE
     Dosage: 60 MG
     Route: 048
  6. TAKECAB [Concomitant]
     Active Substance: VONOPRAZAN FUMURATE
     Dosage: 10 MG
     Route: 048
  7. RHYTHMY [Concomitant]
     Active Substance: RILMAZAFONE HYDROCHLORIDE
     Dosage: 1 MG
     Route: 048
  8. DIART [Concomitant]
     Active Substance: AZOSEMIDE
     Dosage: 60 MILLIGRAM
     Route: 048
  9. FERROMIA [Concomitant]
     Active Substance: SODIUM FERROUS CITRATE
     Dosage: 100 MILLIGRAM
     Route: 048
  10. HOKUNALIN [Concomitant]
     Active Substance: TULOBUTEROL
     Dosage: 2 MILLIGRAM
  11. TAKECAB [Concomitant]
     Active Substance: VONOPRAZAN FUMURATE
     Dosage: 10 MILLIGRAM
     Route: 048
  12. LASIX [Concomitant]
     Active Substance: FUROSEMIDE
     Dosage: 40 MILLIGRAM
     Route: 048
  13. FERROMIA [Concomitant]
     Active Substance: SODIUM FERROUS CITRATE
     Dosage: 100 MG
     Route: 048
  14. RHYTHMY [Concomitant]
     Active Substance: RILMAZAFONE HYDROCHLORIDE
     Dosage: 1 MG
     Route: 048
  15. BIOFERMIN [Concomitant]
     Active Substance: DIETARY SUPPLEMENT\PROBIOTICS
     Dosage: UNK
     Route: 048
  16. RHYTHMY [Concomitant]
     Active Substance: RILMAZAFONE HYDROCHLORIDE
     Dosage: 1 MILLIGRAM
     Route: 048
  17. NORSPAN [Concomitant]
     Active Substance: BUPRENORPHINE
     Dosage: UNK

REACTIONS (3)
  - Pain [Fatal]
  - Chronic kidney disease [Fatal]
  - Marasmus [Fatal]

NARRATIVE: CASE EVENT DATE: 20200106
